FAERS Safety Report 7737138-7 (Version None)
Quarter: 2011Q3

REPORT INFORMATION
  Report Type: 
  Country: None (occurrence: None)
  Receive Date: 20110908
  Receipt Date: 20110902
  Transmission Date: 20111222
  Serious: Yes (Death, Hospitalization)
  Sender: FDA-Public Use
  Company Number: FR-ROCHE-800647

PATIENT
  Sex: Male
  Weight: 28.6 kg

DRUGS (5)
  1. ELOXATIN [Suspect]
     Dosage: DOSE: 200 MG/M2
     Route: 042
     Dates: start: 20090416, end: 20101118
  2. CAMPTOSAR [Suspect]
     Dosage: UNIT:G/M2
     Route: 042
     Dates: start: 20090416, end: 20100603
  3. BEVACIZUMAB [Suspect]
     Route: 042
     Dates: start: 20090416, end: 20090514
  4. FLUOROURACIL [Suspect]
     Route: 042
     Dates: start: 20090416, end: 20101118
  5. FLUOROURACIL [Suspect]
     Dosage: DOSE : 240 G/M2
     Route: 065
     Dates: start: 20090416, end: 20101118

REACTIONS (2)
  - DISEASE PROGRESSION [None]
  - PELVIC ABSCESS [None]
